FAERS Safety Report 15384106 (Version 2)
Quarter: 2018Q4

REPORT INFORMATION
  Report Type: Report from Study
  Country: US (occurrence: US)
  Receive Date: 20180914
  Receipt Date: 20181003
  Transmission Date: 20190204
  Serious: Yes (Hospitalization)
  Sender: FDA-Public Use
  Company Number: US-ROCHE-2184287

PATIENT
  Sex: Male

DRUGS (7)
  1. OSIMERTINIB. [Suspect]
     Active Substance: OSIMERTINIB
     Indication: LUNG ADENOCARCINOMA
     Dosage: LAST PROTOCOL TREAMENT DATE PRIOR TO SAE WAS AT 23/AUG/2018
     Route: 065
     Dates: start: 20170831
  2. ASPIRIN. [Concomitant]
     Active Substance: ASPIRIN
     Route: 065
     Dates: start: 20050101
  3. DIPHENHYDRAMINE. [Concomitant]
     Active Substance: DIPHENHYDRAMINE
     Route: 065
     Dates: start: 20170907
  4. MELATONIN [Concomitant]
     Active Substance: MELATONIN
     Route: 065
     Dates: start: 20170801
  5. RESVERATROL [Concomitant]
     Active Substance: DIETARY SUPPLEMENT\RESVERATROL
     Dosage: 2 UNITS
     Route: 065
     Dates: start: 20170907
  6. BEVACIZUMAB. [Suspect]
     Active Substance: BEVACIZUMAB
     Indication: LUNG ADENOCARCINOMA
     Dosage: LAST PROTOCOL TREAMENT DATE PRIOR TO SAE WAS AT 23/AUG/2018
     Route: 065
     Dates: start: 20170831
  7. ATORVASTATIN [Concomitant]
     Active Substance: ATORVASTATIN
     Route: 065
     Dates: start: 20050101

REACTIONS (2)
  - Non-cardiac chest pain [Unknown]
  - Pneumothorax [Unknown]

NARRATIVE: CASE EVENT DATE: 20180907
